FAERS Safety Report 21983202 (Version 1)
Quarter: 2023Q1

REPORT INFORMATION
  Report Type: Spontaneous
  Country: PL (occurrence: PL)
  Receive Date: 20230213
  Receipt Date: 20230213
  Transmission Date: 20230417
  Serious: Yes (Death, Other)
  Sender: FDA-Public Use
  Company Number: PL-STRIDES ARCOLAB LIMITED-2023SP001938

PATIENT
  Age: 3 Year
  Sex: Male

DRUGS (32)
  1. AMOXICILLIN [Suspect]
     Active Substance: AMOXICILLIN
     Indication: Pyrexia
     Dosage: UNK
     Route: 065
  2. DEXAMETHASONE [Suspect]
     Active Substance: DEXAMETHASONE
     Indication: T-cell lymphoma stage IV
     Dosage: 10 MILLIGRAM/SQ. METER PER DAY PART OF PHASE IIA PROTOCOL
     Route: 065
  3. DEXAMETHASONE [Suspect]
     Active Substance: DEXAMETHASONE
     Dosage: 20 MILLIGRAM/SQ. METER/PER DAY PROTOCOL
     Route: 065
  4. DEXAMETHASONE [Suspect]
     Active Substance: DEXAMETHASONE
     Dosage: 10 MILLIGRAM/SQ. METER PER DAY PART OF PHASE IIA PROTOCOL
     Route: 065
  5. ETOPOSIDE [Suspect]
     Active Substance: ETOPOSIDE
     Indication: T-cell lymphoma stage IV
     Dosage: 75 MILLIGRAM/SQ. METER (PER DAY)
     Route: 065
  6. METHOTREXATE [Suspect]
     Active Substance: METHOTREXATE
     Indication: T-cell lymphoma stage IV
     Dosage: 5 GRAM PER SQUARE METRE (PER DAY) (INFUSION)PROTOCOL)
     Route: 065
  7. METHOTREXATE [Suspect]
     Active Substance: METHOTREXATE
     Dosage: 20 MILLIGRAM/SQ. METER (PER DAY) (PROTOCOL)
     Route: 065
  8. METHOTREXATE [Suspect]
     Active Substance: METHOTREXATE
     Dosage: 1 GRAM PER SQUARE METRE, PROTOCOL)
     Route: 065
  9. PREDNISOLONE [Suspect]
     Active Substance: PREDNISOLONE
     Indication: T-cell lymphoma stage IV
     Dosage: 60 MILLIGRAM/SQ. METER (PER DAY) (PRE-PHASE))
     Route: 065
     Dates: start: 201908
  10. PREDNISOLONE [Suspect]
     Active Substance: PREDNISOLONE
     Dosage: 60 MILLIGRAM/SQ. METER (PER DAY) IN EURO-LB 02 PROTOCOL
     Route: 065
     Dates: start: 201908
  11. MERCAPTOPURINE [Suspect]
     Active Substance: MERCAPTOPURINE
     Indication: T-cell lymphoma stage IV
     Dosage: 60 MILLIGRAM/SQ. METER (PER DAY)PROTOCOL)
     Route: 065
  12. MERCAPTOPURINE [Suspect]
     Active Substance: MERCAPTOPURINE
     Dosage: 25 MILLIGRAM/SQ. METER (PER DAY) PROTOCOL)
     Route: 065
  13. MERCAPTOPURINE [Suspect]
     Active Substance: MERCAPTOPURINE
     Dosage: 50 MILLIGRAM/SQ. METER (PER DAY) PROTOCOL)
     Route: 065
  14. CYTARABINE [Suspect]
     Active Substance: CYTARABINE
     Indication: T-cell lymphoma stage IV
     Dosage: 75 MILLIGRAM/SQ. METER (PER DAY) (PHASE IB) AND (PHASE IIB)
     Route: 065
  15. CYTARABINE [Suspect]
     Active Substance: CYTARABINE
     Dosage: 75 MILLIGRAM/SQ. METER (PER DAY) PROTOCOL)
     Route: 065
  16. CYTARABINE [Suspect]
     Active Substance: CYTARABINE
     Dosage: 2 GRAM PER SQUARE METRE, PROTOCOL)
     Route: 065
  17. ASPARAGINASE [Suspect]
     Active Substance: ASPARAGINASE
     Indication: T-cell lymphoma stage IV
     Dosage: UNK (10000 IU/M2; (PHASE IA) AND (PHASE IIA)
     Route: 065
     Dates: start: 201908
  18. ASPARAGINASE [Suspect]
     Active Substance: ASPARAGINASE
     Dosage: UNK (10000 IU/M2; PROTOCOL)
     Route: 065
     Dates: start: 201908
  19. BORTEZOMIB [Suspect]
     Active Substance: BORTEZOMIB
     Indication: T-cell lymphoma stage IV
     Dosage: 1.3 MILLIGRAM/SQ. METER (PER DAY) PROTOCOL
     Route: 065
  20. BORTEZOMIB [Suspect]
     Active Substance: BORTEZOMIB
     Dosage: 1.3 MILLIGRAM/SQ. METER (PER DAY) PROTOCOL
     Route: 065
  21. CYCLOPHOSPHAMIDE [Suspect]
     Active Substance: CYCLOPHOSPHAMIDE
     Indication: T-cell lymphoma stage IV
     Dosage: 1000 MILLIGRAM/SQ. METER (PER DAY) (PHASE IB) AND (PHASE IIB)
     Route: 065
  22. CYCLOPHOSPHAMIDE [Suspect]
     Active Substance: CYCLOPHOSPHAMIDE
     Dosage: 1000 MILLIGRAM/SQ. METER (PER DAY) PROTOCOL)
     Route: 065
  23. CYCLOPHOSPHAMIDE [Suspect]
     Active Substance: CYCLOPHOSPHAMIDE
     Dosage: 200 MILLIGRAM/SQ. METER, PROTOCOL)
     Route: 065
  24. CYCLOPHOSPHAMIDE [Suspect]
     Active Substance: CYCLOPHOSPHAMIDE
     Dosage: 200 MILLIGRAM/SQ. METER, PER DAY PROTOCOL)
     Route: 065
  25. DAUNORUBICIN [Suspect]
     Active Substance: DAUNORUBICIN
     Indication: T-cell lymphoma stage IV
     Dosage: 30 MILLIGRAM/SQ. METER (PER DAY) PROTOCOL)
     Route: 065
     Dates: start: 201908
  26. MITOXANTRONE [Suspect]
     Active Substance: MITOXANTRONE HYDROCHLORIDE
     Indication: T-cell lymphoma stage IV
     Dosage: 10 MILLIGRAM/SQ. METER, PROTOCOL)
     Route: 065
  27. PEG/L-ASPARAGINASE [Suspect]
     Active Substance: PEGASPARGASE
     Indication: T-cell lymphoma stage IV
     Dosage: UNK (1000 U/M2; PROTOCOL)
     Route: 065
  28. PEG/L-ASPARAGINASE [Suspect]
     Active Substance: PEGASPARGASE
     Dosage: UNK (1000 U/M2; INDUCTION (COURSE HIB)
     Route: 065
  29. VINCRISTINE [Suspect]
     Active Substance: VINCRISTINE
     Indication: T-cell lymphoma stage IV
     Dosage: 1.5 MILLIGRAM/SQ. METER/PER DAY PHASE IA
     Route: 065
     Dates: start: 201908
  30. VINCRISTINE [Suspect]
     Active Substance: VINCRISTINE
     Dosage: 1.5 MILLIGRAM/SQ. METER/PER DAY(PHASE IIA)
     Route: 065
  31. VINCRISTINE [Suspect]
     Active Substance: VINCRISTINE
     Dosage: 1.5 MILLIGRAM/SQ. METER/PER DAY  INDUCTION COURSE HIB
     Route: 065
  32. VINCRISTINE [Suspect]
     Active Substance: VINCRISTINE
     Dosage: 1.5 MILLIGRAM/SQ. METER/PER DAY HC1 CONSOLIDATION
     Route: 065

REACTIONS (4)
  - Drug ineffective [Fatal]
  - Neurotoxicity [Unknown]
  - Seizure [Unknown]
  - Off label use [Unknown]
